FAERS Safety Report 11486481 (Version 1)
Quarter: 2015Q3

REPORT INFORMATION
  Report Type: Report from Study
  Country: KR (occurrence: KR)
  Receive Date: 20150910
  Receipt Date: 20150910
  Transmission Date: 20151125
  Serious: Yes (Hospitalization)
  Sender: FDA-Public Use
  Company Number: KR-ROCHE-1223328

PATIENT
  Age: 64 Year
  Sex: Female
  Weight: 45.1 kg

DRUGS (9)
  1. IRSOGLADINE [Concomitant]
     Active Substance: IRSOGLADINE
     Indication: GASTRITIS
     Dosage: DAILY
     Route: 048
     Dates: start: 20130426, end: 20130506
  2. SILYMARIN [Concomitant]
     Active Substance: MILK THISTLE
     Indication: CHRONIC HEPATITIS
     Dosage: DAILY
     Route: 048
     Dates: start: 20130423, end: 20130427
  3. RIBAVIRIN. [Suspect]
     Active Substance: RIBAVIRIN
     Dosage: DAILY
     Route: 048
     Dates: start: 20130423
  4. PEG-INTERFERON ALFA 2A [Suspect]
     Active Substance: PEGINTERFERON ALFA-2A
     Indication: CHRONIC HEPATITIS C
     Route: 058
     Dates: start: 20130312
  5. METOCLOPRAMIDE HYDROCHLORIDE. [Concomitant]
     Active Substance: METOCLOPRAMIDE HYDROCHLORIDE
     Indication: GASTRITIS
     Dosage: DAILY
     Route: 048
     Dates: start: 20130409
  6. ZOLPIDEM [Concomitant]
     Active Substance: ZOLPIDEM\ZOLPIDEM TARTRATE
     Indication: INSOMNIA
     Dosage: DAILY
     Route: 048
     Dates: start: 20130507
  7. PEG-INTERFERON ALFA 2A [Suspect]
     Active Substance: PEGINTERFERON ALFA-2A
     Route: 058
     Dates: start: 20130507
  8. RIBAVIRIN. [Suspect]
     Active Substance: RIBAVIRIN
     Indication: CHRONIC HEPATITIS C
     Dosage: DAILY
     Route: 048
     Dates: start: 20130312
  9. ACETAMINOPHEN. [Concomitant]
     Active Substance: ACETAMINOPHEN
     Indication: PAIN
     Dosage: DAILY
     Route: 048
     Dates: start: 20130312

REACTIONS (8)
  - Nausea [Not Recovered/Not Resolved]
  - Fatigue [Unknown]
  - Pruritus [Unknown]
  - Thrombocytopenia [Unknown]
  - Decreased appetite [Not Recovered/Not Resolved]
  - Pancytopenia [Not Recovered/Not Resolved]
  - Influenza like illness [Unknown]
  - Asthenia [Not Recovered/Not Resolved]

NARRATIVE: CASE EVENT DATE: 20130313
